FAERS Safety Report 5216507-3 (Version None)
Quarter: 2007Q1

REPORT INFORMATION
  Report Type: 
  Country: None (occurrence: None)
  Receive Date: 20070118
  Receipt Date: 20070103
  Transmission Date: 20070707
  Serious: Yes (Other)
  Sender: FDA-Public Use
  Company Number: S06-FRA-04270-01

PATIENT
  Sex: Female

DRUGS (4)
  1. SEROPLEX (ESCITALOPRAM) [Suspect]
  2. SEROPLEX (ESCITALOPRAM) [Suspect]
     Dosage: 5 MG QD PO
     Route: 048
  3. ANTIHYPERTENSIVES [Suspect]
  4. CHOLESTEROL AND TRIGLYCERIDE REDUCERS [Suspect]

REACTIONS (2)
  - BLOOD CREATINE PHOSPHOKINASE INCREASED [None]
  - MYALGIA [None]
